FAERS Safety Report 4842427-X (Version None)
Quarter: 2005Q4

REPORT INFORMATION
  Report Type: 
  Country: None (occurrence: None)
  Receive Date: 20051125
  Receipt Date: 20051114
  Transmission Date: 20060501
  Serious: Yes (Hospitalization)
  Sender: FDA-Public Use
  Company Number: SUSI-2005-00840

PATIENT
  Age: 37 Year
  Sex: Female

DRUGS (1)
  1. PENTASA [Suspect]
     Indication: CROHN'S DISEASE
     Dosage: 1 G, 1X/DAY;QD, ORAL
     Route: 048
     Dates: start: 20051109

REACTIONS (2)
  - ASTHMA [None]
  - PRURITUS [None]
